FAERS Safety Report 7202465-9 (Version None)
Quarter: 2010Q4

REPORT INFORMATION
  Report Type: 
  Country: None (occurrence: None)
  Receive Date: 20101229
  Receipt Date: 20101222
  Transmission Date: 20110411
  Serious: Yes (Hospitalization)
  Sender: FDA-Public Use
  Company Number: B0690512A

PATIENT
  Sex: Male

DRUGS (5)
  1. WELLVONE [Suspect]
     Indication: PROPHYLAXIS
     Dosage: 750MG TWICE PER DAY
     Route: 048
     Dates: start: 20100401, end: 20101112
  2. ZELITREX [Suspect]
     Indication: PRODUCT USED FOR UNKNOWN INDICATION
     Route: 048
     Dates: start: 20100401, end: 20101112
  3. MABTHERA [Suspect]
     Indication: CHRONIC LYMPHOCYTIC LEUKAEMIA
     Route: 048
     Dates: start: 20100401, end: 20100801
  4. CAPTOPRIL AND HYDROCHLOROTHIAZIDE [Suspect]
     Indication: HYPERTENSION
     Dosage: 1UNIT PER DAY
     Route: 048
  5. DEROXAT [Concomitant]
     Indication: DEPRESSION
     Dosage: 1UNIT PER DAY
     Route: 048

REACTIONS (1)
  - FEBRILE NEUTROPENIA [None]
